FAERS Safety Report 24307344 (Version 6)
Quarter: 2025Q3

REPORT INFORMATION
  Report Type: Spontaneous
  Country: EU (occurrence: EU)
  Receive Date: 20240911
  Receipt Date: 20250904
  Transmission Date: 20251021
  Serious: Yes (Life-Threatening, Hospitalization, Other)
  Sender: SANDOZ
  Company Number: EU-TEVA-VS-3222292

PATIENT
  Age: 20 Year
  Sex: Female

DRUGS (6)
  1. ALCOHOL [Suspect]
     Active Substance: ALCOHOL
     Indication: Product used for unknown indication
     Route: 065
  2. ALCOHOL [Suspect]
     Active Substance: ALCOHOL
     Route: 065
  3. ACETAMINOPHEN [Suspect]
     Active Substance: ACETAMINOPHEN
     Indication: Binge drinking
     Dosage: 3G/DAY, 3 TIMES A WEEK AFTER ALCOHOL CONSUMPTIONUNK
     Route: 065
  4. ACETAMINOPHEN [Suspect]
     Active Substance: ACETAMINOPHEN
     Indication: Alcoholic hangover
     Dosage: 3 G OF PARACETAMOL PER DAY, THREE TIMES A  WEEK.
     Route: 065
  5. ACETAMINOPHEN [Suspect]
     Active Substance: ACETAMINOPHEN
     Indication: Hangover
  6. CANNABIDIOL\HERBALS\TETRAHYDROCANNABINOL UNSPECIFIED [Concomitant]
     Active Substance: CANNABIDIOL\HERBALS\TETRAHYDROCANNABINOL UNSPECIFIED
     Indication: Product used for unknown indication
     Route: 065

REACTIONS (14)
  - Acute hepatic failure [Recovering/Resolving]
  - Hepatic encephalopathy [Recovering/Resolving]
  - Respiratory alkalosis [Recovering/Resolving]
  - Toxicity to various agents [Recovering/Resolving]
  - Hypoalbuminaemia [Recovering/Resolving]
  - Pancytopenia [Recovering/Resolving]
  - Coagulopathy [Recovering/Resolving]
  - Hyperammonaemia [Recovering/Resolving]
  - Intentional product misuse [Recovering/Resolving]
  - Drug level increased [Unknown]
  - Human herpesvirus 6 infection [Unknown]
  - Drug abuse [Unknown]
  - Anorexia nervosa [Unknown]
  - Overdose [Unknown]
